FAERS Safety Report 22303309 (Version 12)
Quarter: 2023Q4

REPORT INFORMATION
  Report Type: Spontaneous
  Country: CA (occurrence: CA)
  Receive Date: 20230510
  Receipt Date: 20231025
  Transmission Date: 20240110
  Serious: Yes (Hospitalization, Other)
  Sender: FDA-Public Use
  Company Number: CA-CELLTRION INC.-2023CA009607

PATIENT

DRUGS (12)
  1. INFLECTRA [Suspect]
     Active Substance: INFLIXIMAB-DYYB
     Indication: Crohn^s disease
     Dosage: 5 MG/KG, 0,2,6 WEEKS, THEN EVERY 8 WEEKS
     Route: 042
     Dates: start: 20230427
  2. INFLECTRA [Suspect]
     Active Substance: INFLIXIMAB-DYYB
     Dosage: 5MG/KG, Q 0,2,6 WEEKS, THEN EVERY 8 WEEKS
     Route: 042
     Dates: start: 20230531
  3. INFLECTRA [Suspect]
     Active Substance: INFLIXIMAB-DYYB
     Dosage: 350 MG (5 MG/KG), WEEK (W) 0, 2, 6 AND EVERY (Q) 8 WEEKS, RELOAD
     Route: 042
     Dates: start: 20230726
  4. INFLECTRA [Suspect]
     Active Substance: INFLIXIMAB-DYYB
     Dosage: 340 MG (5 MG/KG),WEEK 2 OF INDUCTION
     Route: 042
     Dates: start: 20230808
  5. INFLECTRA [Suspect]
     Active Substance: INFLIXIMAB-DYYB
     Dosage: 350 MG (5 MG/KG), EVERY 4 WEEKS AND 1 DAY (WEEK 6)
     Route: 042
     Dates: start: 20230906, end: 20230906
  6. BILASTINE [Concomitant]
     Active Substance: BILASTINE
     Dosage: 1 DF, 1X/DAY
     Route: 065
     Dates: start: 202304
  7. CIPROFLOXACIN [Concomitant]
     Active Substance: CIPROFLOXACIN
     Dosage: 500 MG, 2X/DAY
     Route: 065
     Dates: start: 20230328
  8. CITALOPRAM [Concomitant]
     Active Substance: CITALOPRAM HYDROBROMIDE
     Dosage: 40 MG, 1X/DAY
     Route: 065
  9. HYDROMORPHONE [Concomitant]
     Active Substance: HYDROMORPHONE
     Dosage: 1 MG, 3X/DAY PRN
     Route: 065
     Dates: start: 202304
  10. METRONIDAZOLE [Concomitant]
     Active Substance: METRONIDAZOLE
     Dosage: 500 MG, 3X/DAY
     Route: 065
     Dates: start: 20230328
  11. VYVANSE [Concomitant]
     Active Substance: LISDEXAMFETAMINE DIMESYLATE
     Dosage: 50 MG, 1X/DAY
     Route: 065
  12. ZOPICLONE [Concomitant]
     Active Substance: ZOPICLONE
     Dosage: 7.5 MG, 1X/DAY AT BED TIME
     Route: 065

REACTIONS (12)
  - Fistula [Not Recovered/Not Resolved]
  - Stoma site infection [Recovered/Resolved]
  - Infected fistula [Recovered/Resolved]
  - Infection [Recovered/Resolved]
  - Anal abscess [Unknown]
  - Wound [Unknown]
  - Anal fistula [Unknown]
  - Condition aggravated [Not Recovered/Not Resolved]
  - Abdominal discomfort [Unknown]
  - Arthralgia [Recovered/Resolved]
  - Rash pruritic [Recovered/Resolved]
  - Off label use [Unknown]

NARRATIVE: CASE EVENT DATE: 20230101
